FAERS Safety Report 4389234-2 (Version None)
Quarter: 2004Q2

REPORT INFORMATION
  Report Type: 
  Country: None (occurrence: None)
  Receive Date: 20040628
  Receipt Date: 20040616
  Transmission Date: 20050107
  Serious: Yes (Hospitalization)
  Sender: FDA-Public Use
  Company Number: 03P-062-0245571-00

PATIENT
  Age: 59 Year
  Sex: Female
  Weight: 93 kg

DRUGS (11)
  1. HUMIRA [Suspect]
     Indication: RHEUMATOID ARTHRITIS
     Dosage: 1 IN 2 WK, SUBCUTANEOUS
     Route: 058
  2. SULFASALAZINE [Concomitant]
  3. METHOTREXATE SODIUM [Concomitant]
  4. LEFLUNOMIDE [Concomitant]
  5. PREDNISOLONE [Concomitant]
  6. FOLSAEURE [Concomitant]
  7. BISOPROLOL [Concomitant]
  8. CIMICIFUGA RACEMOSA ROOT [Concomitant]
  9. RISEDRONATE SODIUM [Concomitant]
  10. CALCILAC [Concomitant]
  11. ACYCLOVIR [Concomitant]

REACTIONS (3)
  - BACTERIAL INFECTION [None]
  - SEPSIS [None]
  - SUBCUTANEOUS ABSCESS [None]
